FAERS Safety Report 24378484 (Version 2)
Quarter: 2024Q4

REPORT INFORMATION
  Report Type: Spontaneous
  Country: US (occurrence: US)
  Receive Date: 20240930
  Receipt Date: 20241110
  Transmission Date: 20250114
  Serious: No
  Sender: SANOFI AVENTIS
  Company Number: US-SA-2024SA276192

PATIENT
  Age: 56 Year
  Sex: Female
  Weight: 65.77 kg

DRUGS (6)
  1. DUPIXENT [Suspect]
     Active Substance: DUPILUMAB
     Indication: Dermatitis atopic
     Dosage: 300 MG, QOW
     Route: 058
     Dates: start: 20200915
  2. METRONIDAZOLE [Concomitant]
     Active Substance: METRONIDAZOLE
  3. QULIPTA [Concomitant]
     Active Substance: ATOGEPANT
  4. ESTRADIOL [Concomitant]
     Active Substance: ESTRADIOL
  5. DEXTROAMPHETAMINE [Concomitant]
     Active Substance: DEXTROAMPHETAMINE
  6. AMPHETAMINE [Concomitant]
     Active Substance: AMPHETAMINE

REACTIONS (5)
  - Eye swelling [Unknown]
  - Dermatitis atopic [Unknown]
  - Pruritus [Unknown]
  - Dry skin [Unknown]
  - Skin exfoliation [Unknown]

NARRATIVE: CASE EVENT DATE: 20240901
